FAERS Safety Report 10337763 (Version 2)
Quarter: 2014Q3

REPORT INFORMATION
  Report Type: Spontaneous
  Country: IT (occurrence: IT)
  Receive Date: 20140724
  Receipt Date: 20140724
  Transmission Date: 20150326
  Serious: Yes (Other)
  Sender: FDA-Public Use
  Company Number: IT-BRISTOL-MYERS SQUIBB COMPANY-20172193

PATIENT
  Age: 79 Year
  Sex: Male

DRUGS (4)
  1. CARDURA [Concomitant]
     Active Substance: DOXAZOSIN MESYLATE
     Dosage: TABLET
     Route: 048
  2. AMIODAR [Interacting]
     Active Substance: AMIODARONE
     Indication: TACHYCARDIA
     Dosage: TABLET
     Route: 048
     Dates: start: 20130107, end: 20140205
  3. COUMADIN [Suspect]
     Active Substance: WARFARIN SODIUM
     Indication: CARDIAC VALVE PROSTHESIS USER
     Route: 048
     Dates: start: 20100526, end: 20140711
  4. ENAPREN [Concomitant]
     Active Substance: ENALAPRIL MALEATE
     Indication: HYPERTENSION
     Dosage: TABLET
     Route: 048

REACTIONS (4)
  - Inguinal hernia [Unknown]
  - International normalised ratio increased [Recovered/Resolved]
  - Haemoptysis [Recovered/Resolved]
  - Drug interaction [Unknown]

NARRATIVE: CASE EVENT DATE: 20140103
